FAERS Safety Report 8219702-4 (Version None)
Quarter: 2012Q1

REPORT INFORMATION
  Report Type: 
  Country: None (occurrence: None)
  Receive Date: 20120319
  Receipt Date: 20120309
  Transmission Date: 20120608
  Serious: Yes (Other)
  Sender: FDA-Public Use
  Company Number: US-ASTRAZENECA-2012SE16430

PATIENT
  Sex: Female

DRUGS (1)
  1. SYMBICORT [Suspect]
     Indication: BRONCHITIS CHRONIC
     Dosage: UNKOWN DOSE TWO PUFFS TWO TIMES A DAY
     Route: 055

REACTIONS (3)
  - BLINDNESS [None]
  - OFF LABEL USE [None]
  - DRUG DOSE OMISSION [None]
